FAERS Safety Report 7556357-6 (Version None)
Quarter: 2011Q2

REPORT INFORMATION
  Report Type: 
  Country: None (occurrence: None)
  Receive Date: 20110615
  Receipt Date: 20110615
  Transmission Date: 20111010
  Serious: No
  Sender: FDA-Public Use
  Company Number: None

PATIENT
  Age: 39 Year
  Sex: Female
  Weight: 80.7403 kg

DRUGS (2)
  1. FLUCONAZOLE [Suspect]
     Indication: FUNGAL INFECTION
     Dosage: 150MG 1 PO
     Route: 048
     Dates: start: 20110426, end: 20110426
  2. FLUCONAZOLE [Suspect]
     Dates: start: 20110614, end: 20110614

REACTIONS (10)
  - STOMATITIS [None]
  - PYREXIA [None]
  - PRURITUS [None]
  - OROPHARYNGEAL PAIN [None]
  - HYPERSENSITIVITY [None]
  - EYELID OEDEMA [None]
  - SWELLING FACE [None]
  - RASH MACULAR [None]
  - PHARYNGEAL OEDEMA [None]
  - LIP SWELLING [None]
